FAERS Safety Report 19236738 (Version 2)
Quarter: 2023Q2

REPORT INFORMATION
  Report Type: Report from Study
  Country: JP (occurrence: JP)
  Receive Date: 20210510
  Receipt Date: 20230628
  Transmission Date: 20230721
  Serious: Yes (Hospitalization, Other)
  Sender: FDA-Public Use
  Company Number: JP-EMA-DD-20180131-NSINGHEVHP-141251

PATIENT
  Age: 25 Year
  Sex: Female

DRUGS (10)
  1. MELPHALAN [Suspect]
     Active Substance: MELPHALAN
     Indication: Hodgkin^s disease nodular sclerosis stage III
     Dosage: 140 MG/M2
     Route: 065
  2. ETOPOSIDE [Suspect]
     Active Substance: ETOPOSIDE
     Indication: Hodgkin^s disease nodular sclerosis stage III
     Dosage: 400 MG/M2
     Route: 065
  3. RANIMUSTINE [Suspect]
     Active Substance: RANIMUSTINE
     Indication: Hodgkin^s disease nodular sclerosis stage III
     Dosage: 250 MG/M2
     Route: 065
  4. DOXORUBICIN [Concomitant]
     Active Substance: DOXORUBICIN
     Indication: Hodgkin^s disease nodular sclerosis stage III
     Dosage: UNK
     Route: 065
  5. VINBLASTINE [Concomitant]
     Active Substance: VINBLASTINE
     Indication: Hodgkin^s disease nodular sclerosis stage III
     Dosage: UNK
     Route: 065
  6. BLEOMYCIN [Concomitant]
     Active Substance: BLEOMYCIN SULFATE
     Indication: Hodgkin^s disease nodular sclerosis stage III
     Dosage: UNK
     Route: 065
  7. DACARBAZINE [Concomitant]
     Active Substance: DACARBAZINE
     Indication: Hodgkin^s disease nodular sclerosis stage III
     Dosage: UNK
     Route: 065
  8. DEXAMETHASONE [Concomitant]
     Active Substance: DEXAMETHASONE
     Indication: Hodgkin^s disease nodular sclerosis stage III
     Dosage: UNK
     Route: 065
  9. CYTARABINE [Concomitant]
     Active Substance: CYTARABINE
     Indication: Hodgkin^s disease nodular sclerosis stage III
     Dosage: UNK
     Route: 065
  10. CISPLATIN [Concomitant]
     Active Substance: CISPLATIN
     Indication: Hodgkin^s disease nodular sclerosis stage III

REACTIONS (10)
  - Acute kidney injury [Recovering/Resolving]
  - Cardiac failure [Recovered/Resolved]
  - Hypoxia [Recovered/Resolved]
  - Hypertension [Recovered/Resolved]
  - Haemolytic anaemia [Recovered/Resolved]
  - Paraesthesia [Recovered/Resolved]
  - Thrombotic microangiopathy [Recovering/Resolving]
  - Ventricular hypokinesia [Recovered/Resolved]
  - Neurological symptom [Recovering/Resolving]
  - Off label use [Unknown]
